FAERS Safety Report 6887506-0 (Version None)
Quarter: 2010Q3

REPORT INFORMATION
  Report Type: 
  Country: None (occurrence: None)
  Receive Date: 20100708
  Receipt Date: 20091228
  Transmission Date: 20110219
  Serious: Yes (Other)
  Sender: FDA-Public Use
  Company Number: 2009315281

PATIENT
  Age: 46 Year

DRUGS (1)
  1. CHANTIX [Suspect]

REACTIONS (7)
  - APATHY [None]
  - ASTHENIA [None]
  - CONSTIPATION [None]
  - DISTURBANCE IN ATTENTION [None]
  - NAUSEA [None]
  - NIGHTMARE [None]
  - PARANOIA [None]
